FAERS Safety Report 10020609 (Version 1)
Quarter: 2014Q1

REPORT INFORMATION
  Report Type: Spontaneous
  Country: US (occurrence: US)
  Receive Date: 20140319
  Receipt Date: 20140319
  Transmission Date: 20141002
  Serious: Yes (Hospitalization)
  Sender: FDA-Public Use
  Company Number: US-DRREDDYS-USA/USA/14/0038973

PATIENT
  Age: 80 Year
  Sex: Female

DRUGS (1)
  1. ROPINIROLE HYDROCHLORIDE [Suspect]
     Indication: PRODUCT USED FOR UNKNOWN INDICATION
     Dosage: 0.25 TO 0.5 MG DAILY
     Route: 065

REACTIONS (2)
  - Drug interaction [Unknown]
  - Acute psychosis [Recovered/Resolved]
